FAERS Safety Report 7191026-6 (Version None)
Quarter: 2010Q4

REPORT INFORMATION
  Report Type: 
  Country: None (occurrence: None)
  Receive Date: 20101223
  Receipt Date: 20101220
  Transmission Date: 20110411
  Serious: Yes (Hospitalization, Congenital Anomaly, Other)
  Sender: FDA-Public Use
  Company Number: US-PFIZER INC-2010092580

PATIENT
  Sex: Male
  Weight: 2.7 kg

DRUGS (11)
  1. ZOLOFT [Suspect]
     Dosage: UNK
     Route: 064
  2. NEXIUM [Concomitant]
     Indication: DEPRESSION
     Dosage: UNK
     Route: 064
  3. CYTOMEL [Concomitant]
     Indication: DEPRESSION
     Dosage: UNK
     Route: 064
  4. VERAPAMIL [Concomitant]
     Indication: DEPRESSION
     Dosage: UNK
     Route: 064
  5. MELLARIL [Concomitant]
     Indication: DEPRESSION
     Dosage: UNK
     Route: 064
  6. AMBIEN [Concomitant]
     Dosage: UNK
     Route: 064
  7. PRENATAL VITAMINS [Concomitant]
     Dosage: UNK
     Route: 064
  8. CLONAZEPAM [Concomitant]
     Indication: DEPRESSION
     Dosage: UNK
     Route: 064
  9. ZOFRAN [Concomitant]
     Indication: NAUSEA
     Dosage: UNK
     Route: 064
  10. AMPICILLIN [Concomitant]
     Dosage: 500 MG, UNK
     Route: 064
     Dates: start: 20030929
  11. COREX [Concomitant]
     Dosage: 180 MG, 2X/DAY
     Route: 064

REACTIONS (15)
  - AMBLYOPIA [None]
  - ATRIAL SEPTAL DEFECT [None]
  - BAND NEUTROPHIL COUNT INCREASED [None]
  - CARDIOMEGALY [None]
  - CATARACT CONGENITAL [None]
  - DRUG EXPOSURE DURING PREGNANCY [None]
  - FALLOT'S TETRALOGY [None]
  - HYPERBILIRUBINAEMIA [None]
  - INGUINAL HERNIA [None]
  - JAUNDICE NEONATAL [None]
  - NEONATAL RESPIRATORY DISTRESS SYNDROME [None]
  - NEONATAL TACHYPNOEA [None]
  - PATENT DUCTUS ARTERIOSUS [None]
  - SEPSIS [None]
  - TRICUSPID VALVE INCOMPETENCE [None]
